FAERS Safety Report 24743232 (Version 2)
Quarter: 2025Q4

REPORT INFORMATION
  Report Type: Report from Study
  Country: US (occurrence: US)
  Receive Date: 20241217
  Receipt Date: 20251223
  Transmission Date: 20260117
  Serious: Yes (Hospitalization, Other)
  Sender: ROCHE
  Company Number: US-ROCHE-3578172

PATIENT
  Age: 63 Year
  Sex: Female

DRUGS (14)
  1. OCREVUS [Suspect]
     Active Substance: OCRELIZUMAB
     Indication: Secondary progressive multiple sclerosis
     Dosage: THEN 600 MG EVERY 6 MONTH?DATE OF TREATMENT: 30/NOV/2022, 09/MAY/2023, 09/NOV/2023. RECEIVED 600 MG ON 23/MAY/2024
     Route: 042
     Dates: start: 20221109
  2. OCREVUS [Suspect]
     Active Substance: OCRELIZUMAB
     Indication: Multiple sclerosis
     Dosage: 2O ML , EVERY 6 MONTH
     Route: 042
     Dates: start: 20231109
  3. OCREVUS [Suspect]
     Active Substance: OCRELIZUMAB
     Route: 042
  4. TOPAMAX [Concomitant]
     Active Substance: TOPIRAMATE
  5. DOXEPIN [Concomitant]
     Active Substance: DOXEPIN
  6. DONEPEZIL [Concomitant]
     Active Substance: DONEPEZIL
  7. TOPIRAMATE [Concomitant]
     Active Substance: TOPIRAMATE
     Route: 048
  8. ZANAFLEX [Concomitant]
     Active Substance: TIZANIDINE HYDROCHLORIDE
  9. DOXEPIN [Concomitant]
     Active Substance: DOXEPIN
     Route: 048
  10. LORAZEPAM [Concomitant]
     Active Substance: LORAZEPAM
     Dates: start: 20240807
  11. OMEPRAZOLE [Concomitant]
     Active Substance: OMEPRAZOLE
  12. BUSPIRONE [Concomitant]
     Active Substance: BUSPIRONE HYDROCHLORIDE
  13. OXYCODONE HYDROCHLORIDE [Concomitant]
     Active Substance: OXYCODONE HYDROCHLORIDE
     Route: 048
  14. FLUTICASONE PROPIONATE [Concomitant]
     Active Substance: FLUTICASONE PROPIONATE

REACTIONS (13)
  - Asthenia [Recovered/Resolved]
  - Pain [Recovered/Resolved]
  - Muscular weakness [Recovered/Resolved]
  - Dysphagia [Recovered/Resolved]
  - Blood potassium decreased [Recovered/Resolved]
  - Dehydration [Recovered/Resolved]
  - Neck pain [Unknown]
  - Back pain [Unknown]
  - Insomnia [Unknown]
  - Fall [Unknown]
  - Anosmia [Unknown]
  - Ageusia [Unknown]
  - Seizure [Unknown]

NARRATIVE: CASE EVENT DATE: 20231201
